FAERS Safety Report 11228630 (Version 1)
Quarter: 2015Q2

REPORT INFORMATION
  Report Type: Spontaneous
  Country: CA (occurrence: CA)
  Receive Date: 20150630
  Receipt Date: 20150630
  Transmission Date: 20150821
  Serious: Yes (Hospitalization)
  Sender: FDA-Public Use
  Company Number: CA-ASTELLAS-2015US017461

PATIENT
  Age: 75 Year
  Sex: Female

DRUGS (1)
  1. MYRBETRIQ [Suspect]
     Active Substance: MIRABEGRON
     Indication: PRODUCT USED FOR UNKNOWN INDICATION
     Dates: start: 201503

REACTIONS (8)
  - Respiratory tract congestion [Unknown]
  - Diarrhoea [Unknown]
  - Intentional product use issue [Unknown]
  - Increased upper airway secretion [Unknown]
  - Nasopharyngitis [Unknown]
  - Arthritis [Unknown]
  - Cough [Unknown]
  - Pain [Unknown]
